FAERS Safety Report 5279973-3 (Version None)
Quarter: 2007Q1

REPORT INFORMATION
  Report Type: 
  Country: None (occurrence: None)
  Receive Date: 20070327
  Receipt Date: 20070327
  Transmission Date: 20070707
  Serious: Yes (Hospitalization)
  Sender: FDA-Public Use
  Company Number: None

PATIENT
  Age: 70 Year
  Sex: Female
  Weight: 58.9676 kg

DRUGS (1)
  1. FOSAMAX [Suspect]
     Indication: OSTEOPENIA
     Dates: start: 20070318, end: 20070318

REACTIONS (4)
  - ARTHRALGIA [None]
  - BONE PAIN [None]
  - CHEST DISCOMFORT [None]
  - NO THERAPEUTIC RESPONSE [None]
